FAERS Safety Report 16653988 (Version 3)
Quarter: 2019Q3

REPORT INFORMATION
  Report Type: Report from Study
  Country: DE (occurrence: DE)
  Receive Date: 20190731
  Receipt Date: 20190911
  Transmission Date: 20191004
  Serious: Yes (Hospitalization)
  Sender: FDA-Public Use
  Company Number: DE-INCYTE CORPORATION-2019IN006431

PATIENT

DRUGS (2)
  1. INCB018424 [Suspect]
     Active Substance: RUXOLITINIB
     Indication: PRIMARY MYELOFIBROSIS
     Dosage: 10 MG, QD
     Route: 048
     Dates: start: 20180403
  2. TORASEMIDE [Concomitant]
     Active Substance: TORSEMIDE
     Indication: HYPERTENSION
     Dosage: 5 MG, UNK
     Route: 065
     Dates: start: 20180111

REACTIONS (13)
  - Blood cholesterol increased [Unknown]
  - Transferrin decreased [Unknown]
  - Red blood cells urine positive [Unknown]
  - T-lymphocyte count increased [Unknown]
  - Blood calcium decreased [Unknown]
  - High density lipoprotein decreased [Unknown]
  - Blood thyroid stimulating hormone increased [Unknown]
  - Haematocrit decreased [Unknown]
  - Influenza [Recovered/Resolved]
  - Osteoarthritis [Unknown]
  - Serum ferritin increased [Unknown]
  - Protein S increased [Unknown]
  - Activated partial thromboplastin time prolonged [Unknown]

NARRATIVE: CASE EVENT DATE: 20190502
